FAERS Safety Report 10283599 (Version 1)
Quarter: 2014Q3

REPORT INFORMATION
  Report Type: Spontaneous
  Country: US (occurrence: None)
  Receive Date: 20140702
  Receipt Date: 20140702
  Transmission Date: 20150326
  Serious: Yes (Other)
  Sender: FDA-Public Use
  Company Number: 2014-US-007582

PATIENT
  Age: 71 Year
  Sex: Female

DRUGS (1)
  1. XYREM [Suspect]
     Active Substance: SODIUM OXYBATE
     Indication: INSOMNIA
     Route: 048
     Dates: start: 201405, end: 201406

REACTIONS (7)
  - Performance status decreased [None]
  - Psychotic disorder [None]
  - Disturbance in attention [None]
  - Hallucination, visual [None]
  - Drug dose omission [None]
  - Paranoia [None]
  - Off label use [None]

NARRATIVE: CASE EVENT DATE: 201406
